FAERS Safety Report 9539360 (Version 1)
Quarter: 2013Q3

REPORT INFORMATION
  Report Type: Spontaneous
  Country: DE (occurrence: None)
  Receive Date: 20130917
  Receipt Date: 20130917
  Transmission Date: 20140515
  Serious: No
  Sender: FDA-Public Use
  Company Number: 1309DEU004328

PATIENT
  Age: 88 Year
  Sex: Male

DRUGS (1)
  1. KEIMAX [Suspect]
     Indication: BRONCHITIS
     Route: 048
     Dates: start: 20130906

REACTIONS (2)
  - Neck pain [None]
  - Pruritus [None]
